FAERS Safety Report 7535375-8 (Version None)
Quarter: 2011Q2

REPORT INFORMATION
  Report Type: 
  Country: None (occurrence: None)
  Receive Date: 20110609
  Receipt Date: 20080331
  Transmission Date: 20111010
  Serious: Yes (Death)
  Sender: FDA-Public Use
  Company Number: PHHO2006RU05527

PATIENT
  Sex: Male

DRUGS (3)
  1. ALBUTEROL [Concomitant]
  2. FORMOTEROL FUMARATE [Suspect]
     Indication: CHRONIC OBSTRUCTIVE PULMONARY DISEASE
     Dosage: 12 UG, BID
     Dates: start: 20051220, end: 20060206
  3. ENALAPRIL MALEATE [Concomitant]

REACTIONS (2)
  - HYPERTENSION [None]
  - SUDDEN DEATH [None]
